FAERS Safety Report 4867552-9 (Version None)
Quarter: 2005Q4

REPORT INFORMATION
  Report Type: 
  Country: None (occurrence: None)
  Receive Date: 20051222
  Receipt Date: 20051212
  Transmission Date: 20060501
  Serious: Yes (Hospitalization, Disabling)
  Sender: FDA-Public Use
  Company Number: 2005168239

PATIENT
  Age: 47 Year
  Sex: Female
  Weight: 53.978 kg

DRUGS (10)
  1. ZYRTEC [Suspect]
     Indication: ASTHMA
     Dosage: 10 MG (10 MG, 1 IN 1 D
     Dates: start: 19990801
  2. ZYRTEC [Suspect]
     Indication: MULTIPLE ALLERGIES
     Dosage: 10 MG (10 MG, 1 IN 1 D
     Dates: start: 19990801
  3. ALBUTEROL [Concomitant]
  4. MONTELUKAST [Concomitant]
  5. PREVACID [Concomitant]
  6. WELLBUTRIN [Concomitant]
  7. SYNTHROID [Concomitant]
  8. LEVOXYL [Concomitant]
  9. PULMICORT [Concomitant]
  10. ADVAIR DISKUS 100/50 [Concomitant]

REACTIONS (2)
  - DISEASE RECURRENCE [None]
  - MAJOR DEPRESSION [None]
